FAERS Safety Report 7019106-6 (Version None)
Quarter: 2010Q3

REPORT INFORMATION
  Report Type: 
  Country: None (occurrence: None)
  Receive Date: 20100928
  Receipt Date: 20100922
  Transmission Date: 20110219
  Serious: Yes (Hospitalization)
  Sender: FDA-Public Use
  Company Number: A0883612A

PATIENT
  Age: 26 Year
  Sex: Female

DRUGS (3)
  1. TRIZIVIR [Suspect]
     Indication: ANTIVIRAL TREATMENT
     Dosage: 2TAB PER DAY
     Route: 048
     Dates: start: 20100421, end: 20100707
  2. EPZICOM [Suspect]
     Indication: ANTIVIRAL TREATMENT
     Dosage: 2TAB PER DAY
     Route: 048
     Dates: start: 20100707
  3. KALETRA [Suspect]
     Indication: ANTIVIRAL TREATMENT
     Dosage: 4TAB PER DAY
     Route: 048
     Dates: start: 20100707

REACTIONS (3)
  - ANAEMIA [None]
  - DRUG EXPOSURE DURING PREGNANCY [None]
  - LIVE BIRTH [None]
